FAERS Safety Report 12925256 (Version 2)
Quarter: 2016Q4

REPORT INFORMATION
  Report Type: Report from Study
  Country: NL (occurrence: NL)
  Receive Date: 20161109
  Receipt Date: 20161129
  Transmission Date: 20170207
  Serious: Yes (Hospitalization)
  Sender: FDA-Public Use
  Company Number: PHHY2016NL152813

PATIENT
  Sex: Female

DRUGS (1)
  1. GILENYA [Suspect]
     Active Substance: FINGOLIMOD HYDROCHLORIDE
     Indication: MULTIPLE SCLEROSIS
     Dosage: 0.5 MG, QD
     Route: 048
     Dates: start: 20130712

REACTIONS (3)
  - Weight decreased [Recovered/Resolved]
  - Internal haemorrhage [Recovered/Resolved]
  - Cutis laxa [Recovered/Resolved]

NARRATIVE: CASE EVENT DATE: 2013
